FAERS Safety Report 25396604 (Version 1)
Quarter: 2025Q2

REPORT INFORMATION
  Report Type: Spontaneous
  Country: US (occurrence: US)
  Receive Date: 20250604
  Receipt Date: 20250604
  Transmission Date: 20250716
  Serious: No
  Sender: BAUSCH AND LOMB
  Company Number: US-BAUSCH-BL-2025-006808

PATIENT
  Age: 76 Year
  Sex: Female

DRUGS (1)
  1. TRULANCE [Suspect]
     Active Substance: PLECANATIDE
     Indication: Constipation
     Route: 048

REACTIONS (4)
  - Therapeutic product effect incomplete [Unknown]
  - Product quality issue [Unknown]
  - Poor quality product administered [Unknown]
  - Product physical issue [Unknown]
